FAERS Safety Report 5925662-9 (Version None)
Quarter: 2008Q4

REPORT INFORMATION
  Report Type: 
  Country: None (occurrence: None)
  Receive Date: 20081016
  Receipt Date: 20081010
  Transmission Date: 20090506
  Serious: Yes (Disabling)
  Sender: FDA-Public Use
  Company Number: GXKR2008DE09021

PATIENT
  Age: 69 Year
  Sex: Female
  Weight: 60 kg

DRUGS (2)
  1. OMEP (NGX) (OMEPRAZOLE) GASTRO-RESISTANT CAPSULES, 20MG [Suspect]
     Indication: GASTRITIS EROSIVE
     Dosage: 20 MG, QD, ORAL
     Route: 048
     Dates: start: 20080818, end: 20080823
  2. FBRATES (NO INGREDIENTS/SUBSTANCES) [Concomitant]

REACTIONS (3)
  - VISION BLURRED [None]
  - VISUAL ACUITY REDUCED [None]
  - VISUAL FIELD DEFECT [None]
